FAERS Safety Report 18991809 (Version 1)
Quarter: 2021Q1

REPORT INFORMATION
  Report Type: Spontaneous
  Country: US (occurrence: US)
  Receive Date: 20210310
  Receipt Date: 20210310
  Transmission Date: 20210420
  Serious: No
  Sender: FDA-Public Use
  Company Number: US-PERRIGO-20US018775

PATIENT
  Age: 29 Year
  Sex: Female
  Weight: 65.76 kg

DRUGS (2)
  1. ALBUTEROL SULFATE. [Suspect]
     Active Substance: ALBUTEROL SULFATE
     Indication: ASTHMA
     Dosage: 90 MCG, SINGLE
     Route: 055
     Dates: start: 20200914, end: 20200914
  2. ALBUTEROL SULFATE. [Suspect]
     Active Substance: ALBUTEROL SULFATE
     Dosage: UNK
     Route: 055
     Dates: start: 20200915, end: 2020

REACTIONS (3)
  - Drug ineffective [Unknown]
  - Device delivery system issue [Unknown]
  - Asthma [Unknown]

NARRATIVE: CASE EVENT DATE: 202009
